FAERS Safety Report 5005462-7 (Version None)
Quarter: 2006Q2

REPORT INFORMATION
  Report Type: 
  Country: None (occurrence: None)
  Receive Date: 20060518
  Receipt Date: 20060214
  Transmission Date: 20061013
  Serious: Yes (Hospitalization)
  Sender: FDA-Public Use
  Company Number: US-MERCK-0602USA04291

PATIENT
  Age: 66 Year
  Sex: Female
  Weight: 78 kg

DRUGS (11)
  1. VIOXX [Suspect]
     Indication: ARTHRITIS
     Route: 048
     Dates: start: 20030201, end: 20040101
  2. NORVASC [Concomitant]
     Indication: HYPERTENSION
     Route: 065
     Dates: start: 20000101
  3. LOTENSIN [Concomitant]
     Indication: HYPERTENSION
     Route: 065
     Dates: start: 20000101, end: 20040101
  4. ALBUTEROL [Concomitant]
     Indication: ASTHMA
     Route: 065
  5. ADVAIR DISKUS 100/50 [Concomitant]
     Indication: ASTHMA
     Route: 065
  6. SULFASALAZINE [Concomitant]
     Route: 065
  7. AMBIEN [Concomitant]
     Indication: INSOMNIA
     Route: 065
  8. GLUCOPHAGE [Concomitant]
     Indication: DIABETES MELLITUS
     Route: 065
  9. ACETAMINOPHEN [Concomitant]
     Route: 065
     Dates: start: 20000101, end: 20040101
  10. CELEBREX [Concomitant]
     Route: 065
     Dates: start: 19990101, end: 20041101
  11. LIPITOR [Concomitant]
     Indication: HYPERCHOLESTEROLAEMIA
     Route: 065
     Dates: start: 20000101, end: 20040101

REACTIONS (10)
  - ABDOMINAL PAIN [None]
  - ABDOMINAL PAIN UPPER [None]
  - ANGINA PECTORIS [None]
  - ATELECTASIS [None]
  - CHEST PAIN [None]
  - FAECES DISCOLOURED [None]
  - HAEMATOCHEZIA [None]
  - INTRACRANIAL ANEURYSM [None]
  - THALAMIC INFARCTION [None]
  - VOMITING [None]
